FAERS Safety Report 7739206-2 (Version None)
Quarter: 2011Q3

REPORT INFORMATION
  Report Type: 
  Country: None (occurrence: None)
  Receive Date: 20110909
  Receipt Date: 20110908
  Transmission Date: 20111222
  Serious: No
  Sender: FDA-Public Use
  Company Number: US-PFIZER INC-2011211456

PATIENT
  Age: 50 Year
  Sex: Female
  Weight: 63.492 kg

DRUGS (4)
  1. MOBIC [Concomitant]
     Indication: ARTHRITIS
     Dosage: 50 MG, DAILY
  2. CHANTIX [Suspect]
     Indication: SMOKING CESSATION THERAPY
     Dosage: UNK
     Route: 048
     Dates: start: 20110801
  3. NORVASC [Concomitant]
     Indication: BLOOD PRESSURE ABNORMAL
     Dosage: 5 MG, DAILY
     Route: 048
  4. PRILOSEC [Concomitant]
     Dosage: 20 MG, DAILY

REACTIONS (3)
  - ABDOMINAL DISTENSION [None]
  - AGITATION [None]
  - CONSTIPATION [None]
